FAERS Safety Report 8583861-4 (Version None)
Quarter: 2012Q3

REPORT INFORMATION
  Report Type: 
  Country: None (occurrence: None)
  Receive Date: 20120810
  Receipt Date: 20120731
  Transmission Date: 20120928
  Serious: Yes (Other)
  Sender: FDA-Public Use
  Company Number: US-009507513-1201USA01727

PATIENT

DRUGS (10)
  1. FOSAMAX [Suspect]
     Route: 048
     Dates: start: 20090501, end: 20090901
  2. CALCIUM CARBONATE [Concomitant]
     Dosage: 600 MG, BID
     Dates: start: 19991202
  3. ALENDRONATE SODIUM [Suspect]
     Dates: start: 20090901, end: 20091201
  4. FOSAMAX [Suspect]
     Route: 048
     Dates: start: 20080501, end: 20080801
  5. ALENDRONATE SODIUM [Suspect]
     Dates: start: 20091201, end: 20101201
  6. OS-CAL (CALCIUM CARBONATE) [Concomitant]
  7. RALOXIFENE HYDROCHLORIDE [Concomitant]
     Dosage: 60 MG, UNK
  8. FOSAMAX [Suspect]
     Indication: OSTEOPENIA
     Dosage: UNK
     Route: 048
     Dates: start: 19991206, end: 20080401
  9. FOSAMAX [Suspect]
     Indication: OSTEOPOROSIS
     Dosage: 10 MG, QD
     Route: 048
     Dates: start: 19991206
  10. ALENDRONATE SODIUM [Suspect]
     Dates: start: 20081001, end: 20090501

REACTIONS (6)
  - HYPERTENSION [None]
  - FEMUR FRACTURE [None]
  - STRESS FRACTURE [None]
  - BLOOD CHOLESTEROL INCREASED [None]
  - LOW TURNOVER OSTEOPATHY [None]
  - BREAST CANCER [None]
